FAERS Safety Report 9870844 (Version 1)
Quarter: 2014Q1

REPORT INFORMATION
  Report Type: Spontaneous
  Country: CH (occurrence: CH)
  Receive Date: 20140205
  Receipt Date: 20140205
  Transmission Date: 20141002
  Serious: Yes (Hospitalization)
  Sender: FDA-Public Use
  Company Number: CH-BRISTOL-MYERS SQUIBB COMPANY-20101788

PATIENT
  Age: 60 Year
  Sex: Male

DRUGS (38)
  1. AMIKIN [Suspect]
     Indication: BACTERIAL INFECTION
     Route: 041
     Dates: start: 20131123, end: 20131125
  2. CEFEPIME HCL [Suspect]
     Indication: BACTERIAL INFECTION
     Route: 041
     Dates: start: 20131123, end: 20131129
  3. UROMITEXAN [Suspect]
     Indication: PROPHYLAXIS
     Dosage: 3X800 UND 2X400 IV 19NOV13-20NOV13?3X400MG IV AM 21NOV13
     Route: 041
     Dates: start: 20131119, end: 20131121
  4. ACETYLSALICYLIC ACID [Suspect]
     Indication: PROPHYLAXIS
     Route: 048
     Dates: start: 20131118, end: 20131122
  5. ENDOXAN [Suspect]
     Indication: PROPHYLAXIS
     Route: 041
     Dates: start: 20131119, end: 20131120
  6. BUSULFAN [Suspect]
     Indication: PROPHYLAXIS
     Dosage: 69MG IV 2XAM 21NOV, 4X22NOV-24NOV
     Route: 041
     Dates: start: 20131121, end: 20131124
  7. ANTITHYMOCYTE IMMUNOGLOBULIN [Suspect]
     Indication: PROPHYLAXIS
     Dosage: 22NOV 500MG UND AM 24NOV 900MG
     Route: 041
     Dates: start: 20131122, end: 20131124
  8. METHOTREXATE [Suspect]
     Indication: PROPHYLAXIS
     Route: 041
     Dates: start: 20131129, end: 20131202
  9. SANDIMMUN [Suspect]
     Dosage: 24NOV13-26NOV13:250MG?27NOV13-30NOV13:275MG?325MG SEIT DEM 01DEC13
     Route: 041
     Dates: start: 20131124
  10. SOLU-MEDROL [Suspect]
     Indication: PROPHYLAXIS
     Route: 041
     Dates: start: 20131122, end: 20131124
  11. NOPIL [Suspect]
     Indication: PROPHYLAXIS
     Route: 048
     Dates: start: 201311
  12. DIFLUCAN [Suspect]
     Indication: PROPHYLAXIS
     Route: 048
     Dates: start: 201311
  13. VALTREX [Suspect]
     Indication: PROPHYLAXIS
     Route: 048
     Dates: start: 20131118
  14. LASIX [Suspect]
     Dosage: 20MG/TAG 19NOV13:03DEC13?40MG SEIT DEM 04DEC13
     Route: 041
     Dates: start: 20131119
  15. PANTOZOL [Suspect]
     Indication: PROPHYLAXIS
     Dosage: 40MG ORAL 1X/TAG 18NOV13:01DEC13 ?SEIT DEM 02DEC13 20MG/TAG
     Route: 048
     Dates: start: 20131118
  16. ZYLORIC [Suspect]
     Indication: GOUT
     Route: 048
     Dates: start: 20131118, end: 20131126
  17. ALOXI [Suspect]
     Indication: NAUSEA
     Route: 041
     Dates: start: 20131119, end: 20131119
  18. ALOXI [Suspect]
     Indication: VOMITING
     Route: 041
     Dates: start: 20131119, end: 20131119
  19. EMEND [Suspect]
     Indication: NAUSEA
     Dosage: 125MG AM 19NOV13?80MG:20NOV13:28NOV13
     Route: 041
     Dates: start: 20131119, end: 20131128
  20. EMEND [Suspect]
     Indication: VOMITING
     Dosage: 125MG AM 19NOV13?80MG:20NOV13:28NOV13
     Route: 041
     Dates: start: 20131119, end: 20131128
  21. MERONEM [Suspect]
     Indication: BACTERIAL INFECTION
     Route: 041
     Dates: start: 20131202
  22. ZOVIRAX [Suspect]
     Indication: PROPHYLAXIS
     Dosage: 250 MG IV 1X1 AM 01DEC13 UND 2X2 AM 02DEC13
     Route: 041
     Dates: start: 20131201, end: 20131202
  23. ATORVASTATIN [Suspect]
     Indication: HYPERLIPIDAEMIA
     Route: 048
     Dates: start: 20131118, end: 20131118
  24. VERAPAMIL HCL [Suspect]
     Indication: ESSENTIAL HYPERTENSION
     Dosage: 120MG TGL 2X/TAG 18NOV13-27NOV13?3X/TAG 28NOV13-02DEC13
     Route: 048
     Dates: start: 20131118, end: 20131202
  25. TRIATEC [Suspect]
     Indication: ESSENTIAL HYPERTENSION
     Dosage: 2.5MG ORAL AM 22NOV13 1X UND SEIT DEM 01DEC13?ALTERNIERENG 1X ORDER 2X/TAG
     Route: 048
     Dates: start: 20131122
  26. SOLU-CORTEF [Suspect]
     Indication: PROPHYLAXIS
     Route: 041
     Dates: start: 20131128, end: 20131128
  27. PIPERACILLIN + TAZOBACTUM [Suspect]
     Indication: BACTERIAL INFECTION
     Route: 041
     Dates: start: 20131129, end: 20131201
  28. TRANDATE [Suspect]
     Indication: ESSENTIAL HYPERTENSION
     Route: 041
     Dates: start: 20131201, end: 20131203
  29. TAVEGYL [Concomitant]
  30. FORTECORTIN [Concomitant]
  31. HEPARIN [Concomitant]
  32. PASPERTIN [Concomitant]
  33. FLATULEX [Concomitant]
  34. DUSPATALIN [Concomitant]
  35. LAXOBERON [Concomitant]
  36. LEUCOVORIN [Concomitant]
  37. URSOFALK [Concomitant]
  38. DEFIBROTIDE [Concomitant]

REACTIONS (4)
  - Blood bilirubin increased [Recovering/Resolving]
  - Jaundice [Recovering/Resolving]
  - Haemolysis [Unknown]
  - Hepatic enzyme increased [Recovering/Resolving]
